FAERS Safety Report 4382272-5 (Version None)
Quarter: 2004Q2

REPORT INFORMATION
  Report Type: 
  Country: None (occurrence: None)
  Receive Date: 20040622
  Receipt Date: 20030122
  Transmission Date: 20050107
  Serious: Yes (Other)
  Sender: FDA-Public Use
  Company Number: PHEH2003US00932

PATIENT
  Age: 69 Year
  Sex: Female

DRUGS (4)
  1. GLEEVEC [Suspect]
     Indication: CHRONIC MYELOID LEUKAEMIA
     Dosage: 100 MG, TID
     Route: 048
     Dates: start: 19991201
  2. LEVOXYL [Suspect]
     Indication: HYPOTHYROIDISM
     Dosage: UNK, UNK
     Route: 048
  3. HYDROCHLOROTHIAZIDE [Concomitant]
  4. GLEEVEC [Suspect]
     Dosage: 350 MG, QD
     Route: 048

REACTIONS (12)
  - DYSPNOEA [None]
  - EYELID OPERATION [None]
  - EYELID PTOSIS [None]
  - GENERALISED OEDEMA [None]
  - HALITOSIS [None]
  - MUSCLE CRAMP [None]
  - NIGHTMARE [None]
  - PAIN [None]
  - PALPITATIONS [None]
  - SWELLING [None]
  - VISION BLURRED [None]
  - WEIGHT INCREASED [None]
